FAERS Safety Report 5854960-2 (Version None)
Quarter: 2008Q3

REPORT INFORMATION
  Report Type: 
  Country: None (occurrence: None)
  Receive Date: 20080822
  Receipt Date: 20080811
  Transmission Date: 20090109
  Serious: Yes (Other)
  Sender: FDA-Public Use
  Company Number: US-PFIZER INC-2008068833

PATIENT
  Sex: Female

DRUGS (4)
  1. CHANTIX [Suspect]
     Indication: SMOKING CESSATION THERAPY
     Dates: start: 20070921, end: 20080101
  2. ALLEGRA [Concomitant]
  3. OTHER RESPIRATORY SYSTEM PRODUCTS [Concomitant]
  4. VITAMIN TAB [Concomitant]

REACTIONS (2)
  - ABNORMAL BEHAVIOUR [None]
  - INDIFFERENCE [None]
